FAERS Safety Report 19741664 (Version 2)
Quarter: 2021Q3

REPORT INFORMATION
  Report Type: Spontaneous
  Country: JP (occurrence: JP)
  Receive Date: 20210824
  Receipt Date: 20210920
  Transmission Date: 20211014
  Serious: Yes (Death, Hospitalization)
  Sender: FDA-Public Use
  Company Number: JP-ASTRAZENECA-2021A320949

PATIENT
  Age: 55 Year
  Sex: Male

DRUGS (20)
  1. SELARA [Concomitant]
     Active Substance: EPLERENONE
     Indication: HYPERTENSION
     Dosage: UNKNOWN DOSE AND FREQUENCY
     Route: 065
     Dates: end: 20210728
  2. BEPOTASTINE BESILATE [Concomitant]
     Active Substance: BEPOTASTINE BESYLATE
     Indication: SEASONAL ALLERGY
     Dosage: UNKNOWN DOSE AND FREQUENCY
     Route: 048
     Dates: end: 20210312
  3. NOVAMIN [Concomitant]
     Indication: PROPHYLAXIS OF NAUSEA AND VOMITING
     Dosage: UNKNOWN DOSE AND FREQUENCY
     Route: 048
     Dates: start: 20210119, end: 20210325
  4. MAGNESIUM OXIDE. [Concomitant]
     Active Substance: MAGNESIUM OXIDE
     Indication: CONSTIPATION
     Dosage: 330 MG ? 660 MG/DOSE
     Route: 048
     Dates: start: 20210202, end: 20210804
  5. ALOXI [Concomitant]
     Active Substance: PALONOSETRON HYDROCHLORIDE
     Dosage: 9.9 MG ? 13.2 MG/DOSE
     Route: 042
     Dates: start: 20210209, end: 20210209
  6. OXINORM [Concomitant]
     Dosage: UNKNOWN DOSE AND FREQUENCY2.5MG AS REQUIRED
     Route: 048
     Dates: start: 20210119, end: 20210804
  7. FEBURIC [Concomitant]
     Active Substance: FEBUXOSTAT
     Indication: HYPERURICAEMIA
     Dosage: UNKNOWN DOSE AND FREQUENCY
     Route: 065
     Dates: end: 20210728
  8. APREPITANT. [Concomitant]
     Active Substance: APREPITANT
     Indication: PROPHYLAXIS OF NAUSEA AND VOMITING
     Dosage: UNKNOWN DOSE AND FREQUENCY
     Route: 048
     Dates: start: 20210209, end: 20210209
  9. MANNITOL?S [Concomitant]
     Route: 042
     Dates: start: 20210209, end: 20210209
  10. IMFINZI [Suspect]
     Active Substance: DURVALUMAB
     Indication: SMALL CELL LUNG CANCER
     Route: 041
     Dates: start: 20210209, end: 20210209
  11. ETOPOSIDE. [Concomitant]
     Active Substance: ETOPOSIDE
     Indication: SMALL CELL LUNG CANCER
     Dosage: DOSE UNKNOWN, ON DAY 1, 2 AND 3 OF EACH CYCLE
     Route: 065
     Dates: start: 20210209, end: 20210211
  12. DEXART [Concomitant]
     Active Substance: DEXAMETHASONE SODIUM PHOSPHATE
     Dosage: 9.9 MG ? 13.2 MG/DOSE
     Route: 042
     Dates: start: 20210209, end: 20210212
  13. CISPLATIN. [Suspect]
     Active Substance: CISPLATIN
     Indication: SMALL CELL LUNG CANCER
     Dosage: UNKNOWN DOSE AND FREQUENCY
     Route: 065
     Dates: start: 20210209, end: 20210209
  14. FUROSEMIDE. [Concomitant]
     Active Substance: FUROSEMIDE
     Indication: ATRIAL FIBRILLATION
     Dosage: UNKNOWN DOSE AND FREQUENCY
     Route: 065
     Dates: end: 20210804
  15. TENELIA [Concomitant]
     Active Substance: TENELIGLIPTIN
     Indication: DIABETES MELLITUS
     Dosage: UNKNOWN DOSE AND FREQUENCY
     Route: 065
     Dates: end: 20210728
  16. OXYCONTIN TR [Concomitant]
     Active Substance: OXYCODONE HYDROCHLORIDE
     Dosage: UNKNOWN DOSE AND FREQUENCY
     Route: 048
     Dates: start: 20210119, end: 20210804
  17. PITAVASTATIN CALCIUM [Concomitant]
     Active Substance: PITAVASTATIN CALCIUM
     Indication: SMALL CELL LUNG CANCER
     Dosage: UNKNOWN DOSE AND FREQUENCY
     Route: 065
     Dates: end: 20210728
  18. PRAZAXA [Concomitant]
     Active Substance: DABIGATRAN ETEXILATE MESYLATE
     Indication: ATRIAL FIBRILLATION
     Dosage: UNKNOWN DOSE AND FREQUENCY
     Route: 048
     Dates: end: 20210520
  19. LOXOPROFEN NA [Concomitant]
     Active Substance: LOXOPROFEN SODIUM
     Dosage: UNKNOWN DOSE AND FREQUENCY
     Route: 048
     Dates: start: 20210119, end: 20210728
  20. MAGNESIUM SULFATE. [Concomitant]
     Active Substance: MAGNESIUM SULFATE
     Route: 042
     Dates: start: 20210209, end: 20210209

REACTIONS (4)
  - Neutrophil count decreased [Recovered/Resolved]
  - Immune thrombocytopenia [Not Recovered/Not Resolved]
  - Cellulitis [Recovered/Resolved]
  - Adrenal insufficiency [Not Recovered/Not Resolved]

NARRATIVE: CASE EVENT DATE: 20210225
